FAERS Safety Report 8386132-4 (Version None)
Quarter: 2012Q2

REPORT INFORMATION
  Report Type: 
  Country: None (occurrence: None)
  Receive Date: 20120525
  Receipt Date: 20120516
  Transmission Date: 20120825
  Serious: Yes (Hospitalization)
  Sender: FDA-Public Use
  Company Number: JP-VERTEX PHARMACEUTICALS INC.-AE-2012-007475

PATIENT
  Age: 65 Year
  Sex: Female

DRUGS (5)
  1. TELAVIC (TELAPREVIR) [Suspect]
     Route: 048
     Dates: start: 20120414, end: 20120510
  2. TELAVIC (TELAPREVIR) [Suspect]
     Indication: HEPATITIS C
     Route: 048
     Dates: start: 20120405, end: 20120413
  3. PEG-INTRON [Concomitant]
     Indication: HEPATITIS C
     Route: 058
     Dates: start: 20120405, end: 20120510
  4. MUCOSTA [Concomitant]
     Route: 048
     Dates: start: 20120405, end: 20120415
  5. REBETOL [Concomitant]
     Indication: HEPATITIS C
     Route: 048
     Dates: start: 20120405, end: 20120510

REACTIONS (2)
  - BLOOD CREATININE INCREASED [None]
  - BLOOD URIC ACID INCREASED [None]
